FAERS Safety Report 18393427 (Version 2)
Quarter: 2020Q4

REPORT INFORMATION
  Report Type: Spontaneous
  Country: US (occurrence: US)
  Receive Date: 20201016
  Receipt Date: 20201016
  Transmission Date: 20210114
  Serious: Yes (Hospitalization, Other)
  Sender: FDA-Public Use
  Company Number: US-B.I. PHARMACEUTICALS,INC./RIDGEFIELD-2020-BI-054130

PATIENT

DRUGS (1)
  1. JARDIANCE [Suspect]
     Active Substance: EMPAGLIFLOZIN
     Indication: TYPE 2 DIABETES MELLITUS
     Dosage: UNKNOWN
     Route: 065

REACTIONS (6)
  - Diabetic ketoacidosis [Unknown]
  - Blood ketone body present [Unknown]
  - Blood bicarbonate decreased [Unknown]
  - Metabolic acidosis [Unknown]
  - Urinary tract infection [Unknown]
  - Blood ketone body increased [Unknown]

NARRATIVE: CASE EVENT DATE: 2020
